FAERS Safety Report 24244883 (Version 1)
Quarter: 2024Q3

REPORT INFORMATION
  Report Type: Spontaneous
  Country: CA (occurrence: CA)
  Receive Date: 20240823
  Receipt Date: 20240823
  Transmission Date: 20241016
  Serious: Yes (Death)
  Sender: BAUSCH AND LOMB
  Company Number: CA-BAUSCH-BL-2024-012736

PATIENT
  Age: 66 Year
  Sex: Male

DRUGS (2)
  1. SILIQ [Suspect]
     Active Substance: BRODALUMAB
     Indication: Psoriasis
     Dosage: SILIQ 2 SINGLE USE PREFILLED SYRINGES, SOLUTION SUBCUTANEOUS
     Route: 058
  2. SKYRIZI [Suspect]
     Active Substance: RISANKIZUMAB-RZAA
     Indication: Psoriasis
     Route: 065

REACTIONS (5)
  - Candida infection [Fatal]
  - Multiple organ dysfunction syndrome [Fatal]
  - Respiratory tract infection fungal [Fatal]
  - Urinary tract candidiasis [Fatal]
  - Vascular device infection [Fatal]
